FAERS Safety Report 5734470-3 (Version None)
Quarter: 2008Q2

REPORT INFORMATION
  Report Type: 
  Country: None (occurrence: None)
  Receive Date: 20080512
  Receipt Date: 20080430
  Transmission Date: 20081010
  Serious: Yes (Hospitalization, Other)
  Sender: FDA-Public Use
  Company Number: JP-NOVOPROD-274439

PATIENT
  Sex: Female
  Weight: 57 kg

DRUGS (9)
  1. NOVOLIN R [Suspect]
     Indication: TYPE 1 DIABETES MELLITUS
     Route: 058
  2. DEPAKENE                           /00228502/ [Concomitant]
     Indication: DEPRESSION
     Dosage: 600 MG, QD
     Route: 048
     Dates: start: 20010827
  3. SOLANAX [Concomitant]
     Indication: DEPRESSION
     Dosage: 1.2 MG, QD
     Route: 048
     Dates: start: 20010827
  4. MAGNESIUM OXIDE [Concomitant]
     Indication: CONSTIPATION
     Dosage: 3 G, QD
     Route: 048
     Dates: start: 20080416
  5. DEPAS [Concomitant]
     Indication: DEPRESSION
     Dosage: 2 MG, QD
     Route: 048
     Dates: start: 20010827
  6. HIRNAMIN                           /00038602/ [Concomitant]
     Indication: DEPRESSION
     Dosage: 2.5 MG, QD
     Route: 048
     Dates: start: 20080124
  7. PURSENNID                          /00571901/ [Concomitant]
     Indication: CONSTIPATION
     Dosage: 24 MG, QD
     Route: 048
     Dates: start: 20080827
  8. TRYPTANOL                          /00002202/ [Concomitant]
     Indication: DEPRESSION
     Dosage: 50 MG, QD
     Route: 048
     Dates: start: 20010827
  9. PENFILL 30R CHU [Concomitant]
     Dosage: 12-0-12
     Dates: start: 20080428

REACTIONS (4)
  - HYPOGLYCAEMIA [None]
  - HYPOGLYCAEMIC COMA [None]
  - INTENTIONAL OVERDOSE [None]
  - SUICIDE ATTEMPT [None]
